FAERS Safety Report 16094759 (Version 1)
Quarter: 2019Q1

REPORT INFORMATION
  Report Type: Spontaneous
  Country: FR (occurrence: FR)
  Receive Date: 20190320
  Receipt Date: 20190320
  Transmission Date: 20190418
  Serious: Yes (Other)
  Sender: FDA-Public Use
  Company Number: FR-PFIZER INC-2019117470

PATIENT
  Age: 30 Month

DRUGS (4)
  1. OTIPAX [LIDOCAINE HYDROCHLORIDE;PHENAZONE] [Suspect]
     Active Substance: LIDOCAINE HYDROCHLORIDE\PHENAZOCINE
     Indication: NASOPHARYNGITIS
     Dosage: UNK
  2. MUCOMYST [ACETYLCYSTEINE SODIUM] [Suspect]
     Active Substance: NITROFURANTOIN SODIUM
     Indication: NASOPHARYNGITIS
     Dosage: UNK
     Route: 048
  3. ADVIL [Suspect]
     Active Substance: IBUPROFEN
     Indication: NASOPHARYNGITIS
     Dosage: UNK
  4. PEDIAZOLE [Suspect]
     Active Substance: ERYTHROMYCIN ETHYLSUCCINATE\SULFISOXAZOLE ACETYL
     Indication: NASOPHARYNGITIS
     Dosage: UNK

REACTIONS (2)
  - Face oedema [Unknown]
  - Drug eruption [Unknown]
